FAERS Safety Report 19260602 (Version 1)
Quarter: 2021Q2

REPORT INFORMATION
  Report Type: Spontaneous
  Country: US (occurrence: US)
  Receive Date: 20210514
  Receipt Date: 20210514
  Transmission Date: 20210717
  Serious: No
  Sender: FDA-Public Use
  Company Number: US-SUN PHARMACEUTICAL INDUSTRIES LTD-2020R1-274140

PATIENT
  Age: 35 Year
  Sex: Male

DRUGS (2)
  1. TRIAMCINOLON [Concomitant]
     Indication: PRODUCT USED FOR UNKNOWN INDICATION
     Route: 065
  2. ILUMYA [Suspect]
     Active Substance: TILDRAKIZUMAB-ASMN
     Indication: PSORIASIS
     Dosage: 100 MILLIGRAM, EVERY 12 WEEKS
     Route: 058
     Dates: start: 20191214

REACTIONS (2)
  - Rash [Not Recovered/Not Resolved]
  - Product dose omission issue [Unknown]

NARRATIVE: CASE EVENT DATE: 20201228
